FAERS Safety Report 7617293-X (Version None)
Quarter: 2011Q3

REPORT INFORMATION
  Report Type: 
  Country: None (occurrence: None)
  Receive Date: 20110718
  Receipt Date: 20110704
  Transmission Date: 20111222
  Serious: Yes (Other)
  Sender: FDA-Public Use
  Company Number: PHHY2011CL59784

PATIENT
  Age: 31 Year
  Sex: Female

DRUGS (6)
  1. STEROIDS NOS [Concomitant]
  2. TACROLIMUS [Concomitant]
  3. CYCLOSPORINE [Suspect]
     Indication: RENAL TRANSPLANT
  4. MYCOPHENOLATE MOFETIL [Concomitant]
  5. AZATHIOPRINE [Concomitant]
  6. METHYLPREDNISOLONE [Concomitant]

REACTIONS (2)
  - VASCULAR GRAFT COMPLICATION [None]
  - KIDNEY TRANSPLANT REJECTION [None]
